FAERS Safety Report 5919222-3 (Version None)
Quarter: 2008Q4

REPORT INFORMATION
  Report Type: 
  Country: None (occurrence: None)
  Receive Date: 20081014
  Receipt Date: 20081014
  Transmission Date: 20090506
  Serious: Yes (Other)
  Sender: FDA-Public Use
  Company Number: None

PATIENT
  Age: 51 Year
  Sex: Female
  Weight: 66.2252 kg

DRUGS (3)
  1. METHYLPREDNISOLONE 4MG TAB [Suspect]
     Indication: BRONCHITIS
     Dosage: AS DIRECTED DECREASING DOSE 6 DAYS
     Dates: start: 20080908, end: 20080912
  2. METHYLPREDNISOLONE 4MG TAB [Suspect]
     Indication: EAR INFECTION
     Dosage: AS DIRECTED DECREASING DOSE 6 DAYS
     Dates: start: 20080908, end: 20080912
  3. METHYLPREDNISOLONE 4MG TAB [Suspect]
     Indication: PHARYNGITIS
     Dosage: AS DIRECTED DECREASING DOSE 6 DAYS
     Dates: start: 20080908, end: 20080912

REACTIONS (2)
  - FAT TISSUE INCREASED [None]
  - LOCAL SWELLING [None]
